FAERS Safety Report 4901971-7 (Version None)
Quarter: 2006Q1

REPORT INFORMATION
  Report Type: 
  Country: None (occurrence: None)
  Receive Date: 20060201
  Receipt Date: 20060201
  Transmission Date: 20060701
  Serious: Yes (Life-Threatening)
  Sender: FDA-Public Use
  Company Number: None

PATIENT
  Age: 60 Year
  Sex: Male
  Weight: 87.0906 kg

DRUGS (8)
  1. PRINZIDE [Suspect]
     Indication: CARDIOVASCULAR DISORDER
     Dosage: 20/25 MG PO
     Route: 048
     Dates: start: 20021115
  2. PRINZIDE [Suspect]
     Indication: HYPERTENSION
     Dosage: 20/25 MG PO
     Route: 048
     Dates: start: 20021115
  3. ASPIRIN [Concomitant]
  4. LIPITOR [Concomitant]
  5. PLAVIX [Concomitant]
  6. PRINZIDE [Concomitant]
  7. NORVASC [Concomitant]
  8. LOTENSIN [Concomitant]

REACTIONS (2)
  - BLOOD PRESSURE SYSTOLIC INCREASED [None]
  - PHARMACEUTICAL PRODUCT COMPLAINT [None]
